FAERS Safety Report 5677230-4 (Version None)
Quarter: 2008Q1

REPORT INFORMATION
  Report Type: 
  Country: None (occurrence: None)
  Receive Date: 20080321
  Receipt Date: 20080321
  Transmission Date: 20080703
  Serious: Yes (Other)
  Sender: FDA-Public Use
  Company Number: None

PATIENT
  Age: 35 Year
  Sex: Male
  Weight: 86.1834 kg

DRUGS (1)
  1. LYRICA [Suspect]
     Indication: MYALGIA
     Dosage: 100MG 3X'S A DAY PO
     Route: 048
     Dates: start: 20080118, end: 20080121

REACTIONS (4)
  - BURNING SENSATION [None]
  - ILL-DEFINED DISORDER [None]
  - INSOMNIA [None]
  - MYALGIA [None]
